FAERS Safety Report 18895507 (Version 2)
Quarter: 2022Q2

REPORT INFORMATION
  Report Type: Spontaneous
  Country: GB (occurrence: GB)
  Receive Date: 20210216
  Receipt Date: 20220607
  Transmission Date: 20220721
  Serious: Yes (Life-Threatening, Disabling)
  Sender: FDA-Public Use
  Company Number: None

PATIENT
  Age: 62 Year
  Sex: Male
  Weight: 111 kg

DRUGS (23)
  1. TOCILIZUMAB [Suspect]
     Active Substance: TOCILIZUMAB
     Indication: COVID-19 pneumonia
     Route: 065
     Dates: start: 20210124
  2. ALFENTANIL [Concomitant]
     Active Substance: ALFENTANIL
  3. AMIODARONE [Concomitant]
     Active Substance: AMIODARONE
  4. AMLODIPINE [Concomitant]
     Active Substance: AMLODIPINE BESYLATE
  5. BISOPROLOL [Concomitant]
     Active Substance: BISOPROLOL
  6. CARBOCYSTEINE [Concomitant]
     Active Substance: CARBOCYSTEINE
  7. CLONIDINE [Concomitant]
     Active Substance: CLONIDINE
  8. COLCHICINE [Concomitant]
     Active Substance: COLCHICINE
  9. DIGOXIN [Concomitant]
     Active Substance: DIGOXIN
  10. DOCUSATE SODIUM [Concomitant]
     Active Substance: DOCUSATE SODIUM
  11. DULAGLUTIDE [Concomitant]
     Active Substance: DULAGLUTIDE
  12. ENOXAPARIN [Concomitant]
     Active Substance: ENOXAPARIN
  13. HUMULIN L [Concomitant]
     Active Substance: INSULIN HUMAN
  14. LANSOPRAZOLE [Concomitant]
     Active Substance: LANSOPRAZOLE
  15. LISINOPRIL [Concomitant]
     Active Substance: LISINOPRIL
  16. METFORMIN [Concomitant]
     Active Substance: METFORMIN HYDROCHLORIDE
  17. MORPHINE [Concomitant]
     Active Substance: MORPHINE
  18. NOREPINEPHRINE [Concomitant]
     Active Substance: NOREPINEPHRINE
  19. PIPERACILLIN AND TAZOBACTAM [Concomitant]
     Active Substance: PIPERACILLIN SODIUM\TAZOBACTAM SODIUM
  20. PROPOFOL [Concomitant]
     Active Substance: PROPOFOL
  21. SIMVASTATIN [Concomitant]
     Active Substance: SIMVASTATIN
  22. MEROPENEM [Concomitant]
     Active Substance: MEROPENEM
  23. DEXAMETHASONE [Concomitant]
     Active Substance: DEXAMETHASONE

REACTIONS (4)
  - Sepsis [Unknown]
  - Abdominal distension [Unknown]
  - Large intestine perforation [Not Recovered/Not Resolved]
  - Blood lactic acid increased [Unknown]

NARRATIVE: CASE EVENT DATE: 20210208
